FAERS Safety Report 16701667 (Version 1)
Quarter: 2019Q3

REPORT INFORMATION
  Report Type: Report from Study
  Country: US (occurrence: US)
  Receive Date: 20190814
  Receipt Date: 20190814
  Transmission Date: 20191004
  Serious: Yes (Other)
  Sender: FDA-Public Use
  Company Number: US-ASTRAZENECA-2019SF15206

PATIENT
  Sex: Female

DRUGS (4)
  1. TAGRISSO [Suspect]
     Active Substance: OSIMERTINIB
     Indication: LUNG NEOPLASM MALIGNANT
     Dosage: UNKNOWN DOSE OF FREQUENCY
     Route: 048
  2. LOPERAMIDE [Concomitant]
     Active Substance: LOPERAMIDE
  3. TYLENOL [Concomitant]
     Active Substance: ACETAMINOPHEN
  4. XGEVA [Concomitant]
     Active Substance: DENOSUMAB

REACTIONS (1)
  - Malignant neoplasm progression [Unknown]
